FAERS Safety Report 10037051 (Version 1)
Quarter: 2014Q1

REPORT INFORMATION
  Report Type: Spontaneous
  Country: DE (occurrence: DE)
  Receive Date: 20140326
  Receipt Date: 20140326
  Transmission Date: 20141002
  Serious: Yes (Other)
  Sender: FDA-Public Use
  Company Number: DE-DRREDDYS-GER/GER/14/0039062

PATIENT
  Age: 77 Year
  Sex: Male
  Weight: 85 kg

DRUGS (11)
  1. FINASTERIDE [Suspect]
     Indication: BENIGN PROSTATIC HYPERPLASIA
     Route: 048
     Dates: start: 20140305, end: 20140311
  2. LEVODOPA [Concomitant]
     Indication: PARKINSON^S DISEASE
     Dosage: } 1000 MG/TAG
     Route: 048
     Dates: start: 1999, end: 2014
  3. SIFROL [Concomitant]
     Indication: PARKINSON^S DISEASE
     Dosage: MAXIMUM DOSE
     Route: 048
     Dates: start: 2011
  4. AZILECT [Concomitant]
     Indication: PARKINSON^S DISEASE
     Dosage: DAILY DOSE: 1 MG MILLIGRAM(S) EVERY DAY
     Route: 048
     Dates: start: 2012, end: 2014
  5. TASMAR [Concomitant]
     Indication: PARKINSON^S DISEASE
     Route: 048
  6. MOTILIUM [Concomitant]
     Indication: PROPHYLAXIS
     Route: 048
  7. LEVETIRACETAM [Concomitant]
     Indication: PARTIAL SEIZURES
     Route: 048
     Dates: start: 201311, end: 2014
  8. ACETYLSALICYLIC ACID [Concomitant]
     Indication: CEREBROVASCULAR ACCIDENT
     Route: 048
     Dates: start: 2005
  9. TORASEMIDE [Concomitant]
     Indication: HYPERTENSIVE HEART DISEASE
     Dosage: DAILY DOSE: 5 MG MILLIGRAM(S) EVERY DAY
     Route: 048
     Dates: start: 201401, end: 201403
  10. TAMSULOSIN [Concomitant]
     Indication: BENIGN PROSTATIC HYPERPLASIA
     Route: 048
     Dates: start: 201310
  11. MACROGOL [Concomitant]
     Indication: CONSTIPATION
     Route: 048
     Dates: start: 2007

REACTIONS (1)
  - Dermatitis allergic [Recovering/Resolving]
